FAERS Safety Report 12297862 (Version 1)
Quarter: 2016Q2

REPORT INFORMATION
  Report Type: Spontaneous
  Country: IT (occurrence: IT)
  Receive Date: 20160422
  Receipt Date: 20160422
  Transmission Date: 20160815
  Serious: Yes (Hospitalization)
  Sender: FDA-Public Use
  Company Number: IT-PFIZER INC-2016217886

PATIENT
  Age: 70 Year
  Sex: Male

DRUGS (7)
  1. CARDIRENE [Concomitant]
     Active Substance: ASPIRIN DL-LYSINE
  2. CETUXIMAB [Suspect]
     Active Substance: CETUXIMAB
     Indication: CHEMOTHERAPY
     Dosage: 1 DF, CYCLIC
     Route: 042
     Dates: start: 20150204, end: 20150204
  3. PANTOPRAZOLE [Concomitant]
     Active Substance: PANTOPRAZOLE SODIUM
  4. PLASIL /00041901/ [Concomitant]
     Active Substance: METOCLOPRAMIDE
  5. IRINOTECAN HCL [Suspect]
     Active Substance: IRINOTECAN HYDROCHLORIDE
     Dosage: 1 DF, CYCLIC
     Route: 042
     Dates: start: 20150204, end: 20150204
  6. CRESTOR [Concomitant]
     Active Substance: ROSUVASTATIN CALCIUM
  7. METOPROLOL. [Concomitant]
     Active Substance: METOPROLOL

REACTIONS (5)
  - Chromaturia [Not Recovered/Not Resolved]
  - Sepsis [Not Recovered/Not Resolved]
  - Pancytopenia [Not Recovered/Not Resolved]
  - Pyrexia [Not Recovered/Not Resolved]
  - Chills [Not Recovered/Not Resolved]

NARRATIVE: CASE EVENT DATE: 20150206
